FAERS Safety Report 5227285-6 (Version None)
Quarter: 2007Q1

REPORT INFORMATION
  Report Type: 
  Country: None (occurrence: None)
  Receive Date: 20070202
  Receipt Date: 20070124
  Transmission Date: 20070707
  Serious: Yes (Death, Life-Threatening)
  Sender: FDA-Public Use
  Company Number: JP-ROCHE-476632

PATIENT
  Age: 58 Year
  Sex: Female
  Weight: 44 kg

DRUGS (5)
  1. XELODA [Suspect]
     Indication: BREAST CANCER METASTATIC
     Dosage: DRUG REPORTED AS: XELODA 300.
     Route: 048
     Dates: start: 20050823, end: 20061219
  2. CIPROFLOXACIN [Suspect]
     Indication: PYREXIA
     Route: 048
     Dates: start: 20061219, end: 20061229
  3. ZOMETA [Concomitant]
     Route: 041
     Dates: start: 20060711, end: 20061128
  4. MARZULENE [Concomitant]
     Route: 048
     Dates: start: 20061031, end: 20061229
  5. PURSENNID [Concomitant]
     Route: 048
     Dates: start: 20061226, end: 20061229

REACTIONS (2)
  - INAPPROPRIATE ANTIDIURETIC HORMONE SECRETION [None]
  - PNEUMONIA [None]
